FAERS Safety Report 9294267 (Version 2)
Quarter: 2013Q2

REPORT INFORMATION
  Report Type: Spontaneous
  Country: US (occurrence: US)
  Receive Date: 20130516
  Receipt Date: 20130529
  Transmission Date: 20140414
  Serious: Yes (Hospitalization)
  Sender: FDA-Public Use
  Company Number: US-ALEXION PHARMACEUTICALS INC.-A201301056

PATIENT
  Age: 38 Year
  Sex: Female

DRUGS (1)
  1. SOLIRIS 300MG [Suspect]
     Indication: HAEMOLYTIC URAEMIC SYNDROME
     Dosage: UNK
     Route: 042

REACTIONS (13)
  - Blood erythropoietin increased [Not Recovered/Not Resolved]
  - Serum ferritin increased [Recovered/Resolved]
  - Blood pressure increased [Unknown]
  - Blood urine present [Recovered/Resolved]
  - Haemorrhage [Unknown]
  - Laboratory test abnormal [Unknown]
  - Incorrect dose administered [Unknown]
  - Hypotension [Unknown]
  - Headache [Unknown]
  - Neck pain [Unknown]
  - Back pain [Unknown]
  - Vomiting [Recovered/Resolved]
  - Asthenia [Unknown]
